FAERS Safety Report 9711823 (Version 1)
Quarter: 2013Q4

REPORT INFORMATION
  Report Type: Spontaneous
  Country: US (occurrence: None)
  Receive Date: 20131125
  Receipt Date: 20131125
  Transmission Date: 20140711
  Serious: Yes (Life-Threatening, Hospitalization)
  Sender: FDA-Public Use
  Company Number: None

PATIENT
  Age: 74 Year
  Sex: Male
  Weight: 123.38 kg

DRUGS (4)
  1. NAPROXEN [Suspect]
     Indication: PLANTAR FASCIITIS
     Dosage: ONE PILL
     Route: 048
     Dates: start: 20131029, end: 20131031
  2. MAGNESIUM [Concomitant]
  3. CAYENNE PEPPER [Concomitant]
  4. FOLIC ACID [Concomitant]

REACTIONS (5)
  - Chest pain [None]
  - Dyspnoea [None]
  - Pulmonary thrombosis [None]
  - Pneumonia [None]
  - Thrombosis [None]
